FAERS Safety Report 9530691 (Version 4)
Quarter: 2013Q4

REPORT INFORMATION
  Report Type: Report from Study
  Country: CA (occurrence: CA)
  Receive Date: 20130918
  Receipt Date: 20131026
  Transmission Date: 20140711
  Serious: Yes (Hospitalization, Other)
  Sender: FDA-Public Use
  Company Number: CA-ROCHE-1066236

PATIENT
  Age: 73 Year
  Sex: Female
  Weight: 49 kg

DRUGS (7)
  1. ACTEMRA [Suspect]
     Indication: RHEUMATOID ARTHRITIS
     Route: 042
     Dates: start: 20110421
  2. TYLENOL [Concomitant]
     Indication: PAIN
  3. ALENDRONATE [Concomitant]
  4. FAMOTIDINE [Concomitant]
  5. FOLIC ACID [Concomitant]
  6. METHOTREXATE [Concomitant]
     Indication: RHEUMATOID ARTHRITIS
  7. PREDNISONE [Concomitant]
     Route: 065

REACTIONS (12)
  - Pneumonia [Recovering/Resolving]
  - Urinary tract infection [Unknown]
  - Dizziness [Unknown]
  - Tinnitus [Unknown]
  - Gastrointestinal haemorrhage [Unknown]
  - Macular degeneration [Unknown]
  - Nasopharyngitis [Unknown]
  - Infection [Unknown]
  - Dyspnoea [Recovered/Resolved]
  - Cataract [Unknown]
  - Blood pressure increased [Not Recovered/Not Resolved]
  - Nausea [Unknown]
